FAERS Safety Report 21915833 (Version 1)
Quarter: 2023Q1

REPORT INFORMATION
  Report Type: Spontaneous
  Country: US (occurrence: US)
  Receive Date: 20230126
  Receipt Date: 20230126
  Transmission Date: 20230417
  Serious: Yes (Other)
  Sender: FDA-Public Use
  Company Number: US-PFIZER INC-202300034858

PATIENT
  Sex: Female

DRUGS (1)
  1. IBRANCE [Suspect]
     Active Substance: PALBOCICLIB
     Dosage: UNK

REACTIONS (6)
  - Hand fracture [Unknown]
  - Peripheral coldness [Unknown]
  - Pain [Unknown]
  - Limb injury [Unknown]
  - Muscle spasms [Unknown]
  - Muscle tightness [Unknown]
